FAERS Safety Report 8439362 (Version 2)
Quarter: 2013Q2

REPORT INFORMATION
  Report Type: Spontaneous
  Country: US (occurrence: None)
  Receive Date: 20120104
  Receipt Date: 20120709
  Transmission Date: 20140414
  Serious: No
  Sender: FDA-Public Use
  Company Number: 2011HGS-002716

PATIENT
  Age: 66 Year
  Sex: Female
  Weight: 68.04 kg

DRUGS (10)
  1. BENLYSTA [Suspect]
     Indication: SYSTEMIC LUPUS ERYTHEMATOSUS
     Dosage: 10 MG/KG, 1 IN 28 D, INTRAVENOUS DRIP
     Route: 041
     Dates: start: 20110831
  2. METHYLPREDNISONE (METHYLPREDNISOLONE) (METHYLPREDNISOLONE) [Concomitant]
  3. METHOTREXATE [Concomitant]
  4. SOMA (CARISOPRODOL) (CARISOPRODOL) [Concomitant]
  5. LISINOPIRL (LISINOPRIL) (LISINOPRIL) [Concomitant]
  6. TRAVATAN (TRAVOPROST) (TRAVOPROST) [Concomitant]
  7. AZASITE [Concomitant]
  8. FYSTANE (POLYETHYLENE GLYCOL) [Concomitant]
  9. VOLTAREN (DICLOFENAC POTASSIUM) (DICLOFENAC POTASSIUM) [Concomitant]
  10. OMEPRAZOLE [Concomitant]

REACTIONS (11)
  - CYST [None]
  - BLISTER [None]
  - FEELING HOT [None]
  - HYPERHIDROSIS [None]
  - FEELING COLD [None]
  - ARTHRALGIA [None]
  - PRURITUS [None]
  - BONE PAIN [None]
  - CONDITION AGGRAVATED [None]
  - Myalgia [None]
  - Burning sensation [None]
